FAERS Safety Report 7817460-6 (Version None)
Quarter: 2011Q4

REPORT INFORMATION
  Report Type: 
  Country: None (occurrence: None)
  Receive Date: 20111017
  Receipt Date: 20111007
  Transmission Date: 20120403
  Serious: Yes (Hospitalization)
  Sender: FDA-Public Use
  Company Number: JP-ROCHE-1004257

PATIENT
  Age: 89 Year
  Sex: Male

DRUGS (3)
  1. EDARAVONE [Suspect]
     Indication: EMBOLIC STROKE
     Route: 041
  2. GLYCEOL [Concomitant]
     Route: 041
     Dates: start: 20110105, end: 20110106
  3. ALTEPLASE [Suspect]
     Indication: EMBOLIC STROKE
     Route: 042
     Dates: start: 20110105

REACTIONS (1)
  - RENAL IMPAIRMENT [None]
